FAERS Safety Report 13190896 (Version 1)
Quarter: 2017Q1

REPORT INFORMATION
  Report Type: Spontaneous
  Country: SE (occurrence: SE)
  Receive Date: 20170206
  Receipt Date: 20170206
  Transmission Date: 20170428
  Serious: Yes (Other)
  Sender: FDA-Public Use
  Company Number: SE-JNJFOC-20170121509

PATIENT
  Age: 7 Decade
  Sex: Female

DRUGS (5)
  1. IPREN [Suspect]
     Active Substance: IBUPROFEN
     Route: 065
  2. STILNOCT [Concomitant]
     Active Substance: ZOLPIDEM TARTRATE
     Indication: SLEEP DISORDER THERAPY
     Route: 065
  3. CALCIUM [Concomitant]
     Active Substance: CALCIUM
     Indication: OSTEOPOROSIS
     Route: 065
  4. IPREN [Suspect]
     Active Substance: IBUPROFEN
     Indication: INFLUENZA
     Dosage: 400MG TABLETS/TWICE DAILY FOR APPROX. 3 WEEKS
     Route: 065
     Dates: start: 201612
  5. VITAMINE C [Concomitant]
     Active Substance: ASCORBIC ACID
     Indication: PRODUCT USED FOR UNKNOWN INDICATION
     Route: 065

REACTIONS (2)
  - Vision blurred [Not Recovered/Not Resolved]
  - Pneumonia [Unknown]

NARRATIVE: CASE EVENT DATE: 201612
